FAERS Safety Report 8031675-6 (Version None)
Quarter: 2012Q1

REPORT INFORMATION
  Report Type: 
  Country: None (occurrence: None)
  Receive Date: 20120109
  Receipt Date: 20111229
  Transmission Date: 20120608
  Serious: Yes (Other)
  Sender: FDA-Public Use
  Company Number: US-ELI_LILLY_AND_COMPANY-US201201001380

PATIENT
  Sex: Female

DRUGS (1)
  1. FORTEO [Suspect]
     Dosage: UNK, UNKNOWN
     Route: 065

REACTIONS (8)
  - MOVEMENT DISORDER [None]
  - SHOULDER OPERATION [None]
  - ARTHRALGIA [None]
  - BONE DISORDER [None]
  - BACK PAIN [None]
  - MUSCLE STRAIN [None]
  - MUSCLE SPASMS [None]
  - LIMB OPERATION [None]
